FAERS Safety Report 7630105-3 (Version None)
Quarter: 2011Q3

REPORT INFORMATION
  Report Type: 
  Country: None (occurrence: None)
  Receive Date: 20110722
  Receipt Date: 20110720
  Transmission Date: 20111222
  Serious: No
  Sender: FDA-Public Use
  Company Number: US-PFIZER INC-2011165515

PATIENT
  Sex: Male
  Weight: 102 kg

DRUGS (2)
  1. LIPITOR [Suspect]
     Indication: BLOOD CHOLESTEROL INCREASED
     Dosage: 20 MG, DAILY
     Route: 048
     Dates: start: 20030101
  2. LIPITOR [Suspect]
     Dosage: 20 MG, ONE HALF TABLET DAILY
     Route: 048
     Dates: start: 20100101, end: 20110501

REACTIONS (4)
  - JOINT STIFFNESS [None]
  - MUSCULAR WEAKNESS [None]
  - OEDEMA PERIPHERAL [None]
  - PAIN IN EXTREMITY [None]
